FAERS Safety Report 9869768 (Version 1)
Quarter: 2014Q1

REPORT INFORMATION
  Report Type: Report from Study
  Country: CN (occurrence: CN)
  Receive Date: 20140205
  Receipt Date: 20140205
  Transmission Date: 20141002
  Serious: Yes (Hospitalization, Other)
  Sender: FDA-Public Use
  Company Number: CN-ASTELLAS-2014US001085

PATIENT
  Age: 82 Year
  Sex: Male

DRUGS (1)
  1. ERLOTINIB TABLET [Suspect]
     Indication: NON-SMALL CELL LUNG CANCER
     Dosage: 150 MG, UID/QD
     Route: 048
     Dates: start: 20130628

REACTIONS (6)
  - Cardiac failure [Unknown]
  - Asthma [Recovering/Resolving]
  - Tachycardia [Recovering/Resolving]
  - Bronchitis [Recovering/Resolving]
  - Pyrexia [Unknown]
  - Nasopharyngitis [Unknown]
